FAERS Safety Report 5114879-1 (Version None)
Quarter: 2006Q3

REPORT INFORMATION
  Report Type: 
  Country: None (occurrence: None)
  Receive Date: 20060926
  Receipt Date: 20060116
  Transmission Date: 20061208
  Serious: Yes (Death, Life-Threatening)
  Sender: FDA-Public Use
  Company Number: 2006CG00118

PATIENT
  Sex: Male
  Weight: 0.6 kg

DRUGS (3)
  1. TENORMIN [Suspect]
     Route: 064
  2. LOXEN [Suspect]
     Route: 064
     Dates: start: 20051101
  3. ALDOMET [Concomitant]
     Route: 064
     Dates: end: 20051101

REACTIONS (16)
  - ACIDOSIS [None]
  - BLOOD BILIRUBIN INCREASED [None]
  - BLOOD GLUCOSE DECREASED [None]
  - BRADYCARDIA FOETAL [None]
  - CAESAREAN SECTION [None]
  - CIRCULATORY COLLAPSE [None]
  - DRUG EXPOSURE DURING PREGNANCY [None]
  - DRUG INEFFECTIVE [None]
  - FOETAL GROWTH RETARDATION [None]
  - HAEMODILUTION [None]
  - JAUNDICE NEONATAL [None]
  - NEONATAL DISORDER [None]
  - NEONATAL RESPIRATORY DISTRESS SYNDROME [None]
  - PREMATURE BABY [None]
  - PULMONARY HAEMORRHAGE [None]
  - RENAL FAILURE ACUTE [None]
